FAERS Safety Report 15795365 (Version 1)
Quarter: 2019Q1

REPORT INFORMATION
  Report Type: Spontaneous
  Country: US (occurrence: US)
  Receive Date: 20190107
  Receipt Date: 20190107
  Transmission Date: 20190417
  Serious: Yes (Hospitalization, Other)
  Sender: FDA-Public Use
  Company Number: US-ASSERTIO THERAPEUTICS, INC.-US-2018DEP002001

PATIENT

DRUGS (1)
  1. GRALISE [Suspect]
     Active Substance: GABAPENTIN
     Indication: PAIN
     Dosage: 1200 MG, QD
     Route: 048
     Dates: start: 20160928

REACTIONS (3)
  - Pneumonia [Unknown]
  - Arthralgia [Unknown]
  - Lower limb fracture [Unknown]

NARRATIVE: CASE EVENT DATE: 20181208
